FAERS Safety Report 22945789 (Version 3)
Quarter: 2023Q4

REPORT INFORMATION
  Report Type: Report from Study
  Country: US (occurrence: US)
  Receive Date: 20230914
  Receipt Date: 20231117
  Transmission Date: 20240110
  Serious: Yes (Other)
  Sender: FDA-Public Use
  Company Number: US-JNJFOC-20230916762

PATIENT
  Age: 74 Year
  Sex: Male

DRUGS (4)
  1. APALUTAMIDE [Suspect]
     Active Substance: APALUTAMIDE
     Indication: Prostate cancer
     Dosage: 60 MG X 4
     Route: 048
     Dates: start: 20230417
  2. VITAMINS [Concomitant]
     Active Substance: VITAMINS
     Indication: Product used for unknown indication
     Route: 065
  3. NIACIN [Concomitant]
     Active Substance: NIACIN
     Indication: Vitamin supplementation
     Route: 065
     Dates: start: 202309
  4. FISH OIL [Concomitant]
     Active Substance: FISH OIL
     Indication: Nutritional supplementation

REACTIONS (1)
  - Product dose omission issue [Unknown]

NARRATIVE: CASE EVENT DATE: 20230830
